FAERS Safety Report 8927377 (Version 1)
Quarter: 2012Q4

REPORT INFORMATION
  Report Type: 
  Country: US (occurrence: US)
  Receive Date: 20121127
  Receipt Date: 20121127
  Transmission Date: 20130627
  Serious: No
  Sender: FDA-Public Use
  Company Number: PHEH2012US023219

PATIENT
  Age: 48 Year
  Sex: Female
  Weight: 81.63 kg

DRUGS (10)
  1. TASIGNA [Suspect]
     Dosage: 300 mg, BID
     Route: 048
  2. SINGULAIR [Concomitant]
  3. PROVENTIL HFA ^KEY PHARMACEUTICAL^ [Concomitant]
  4. ALLEGRA [Concomitant]
  5. NAPROXEN [Concomitant]
  6. VIT D [Concomitant]
  7. HYDROCODONE BITARTRATE AND ACETAMINOPHEN [Concomitant]
  8. LEXAPRO [Concomitant]
  9. MULTI-VIT [Concomitant]
  10. MINERALS NOS [Concomitant]

REACTIONS (2)
  - Rash generalised [Unknown]
  - Generalised oedema [Unknown]
